FAERS Safety Report 15439331 (Version 2)
Quarter: 2019Q1

REPORT INFORMATION
  Report Type: Spontaneous
  Country: JP (occurrence: JP)
  Receive Date: 20180928
  Receipt Date: 20190228
  Transmission Date: 20190417
  Serious: Yes (Life-Threatening, Other)
  Sender: FDA-Public Use
  Company Number: JP-ACCORD-072794

PATIENT
  Age: 70 Year
  Sex: Male

DRUGS (1)
  1. CISPLATIN. [Suspect]
     Active Substance: CISPLATIN
     Indication: GASTRIC CANCER STAGE III

REACTIONS (3)
  - Platelet count decreased [Unknown]
  - Protein C deficiency [Unknown]
  - Aortic thrombosis [Recovered/Resolved]
